FAERS Safety Report 8128241-0 (Version None)
Quarter: 2011Q4

REPORT INFORMATION
  Report Type: 
  Country: None (occurrence: None)
  Receive Date: 20111227
  Receipt Date: 20111027
  Transmission Date: 20120403
  Serious: No
  Sender: FDA-Public Use
  Company Number: PHHY2011US59629

PATIENT

DRUGS (8)
  1. GILENYA [Suspect]
     Indication: MULTIPLE SCLEROSIS
     Dosage: 0.5 MG, DAILY, ORAL
     Route: 048
     Dates: start: 20110301
  2. FLAXSEED OIL (LINUM USITATISSIMUM SEED OIL) [Concomitant]
  3. VITAMIN D [Concomitant]
  4. DETROL [Concomitant]
  5. MULTIVITAMIN [Concomitant]
  6. FAMPRIDINE (FAMPRIDINE) [Concomitant]
  7. POTASSIUM CHLORIDE [Concomitant]
  8. LASIX [Concomitant]

REACTIONS (7)
  - HEADACHE [None]
  - MUSCULOSKELETAL DISCOMFORT [None]
  - NASOPHARYNGITIS [None]
  - ALOPECIA [None]
  - PYREXIA [None]
  - MUSCLE SPASMS [None]
  - SINUSITIS [None]
